FAERS Safety Report 7041900-6 (Version None)
Quarter: 2010Q4

REPORT INFORMATION
  Report Type: 
  Country: None (occurrence: None)
  Receive Date: 20101013
  Receipt Date: 20090916
  Transmission Date: 20110411
  Serious: No
  Sender: FDA-Public Use
  Company Number: US-ASTRAZENECA-2009SE13512

PATIENT
  Age: 67 Year
  Sex: Female
  Weight: 78.9 kg

DRUGS (2)
  1. SYMBICORT [Suspect]
     Indication: ASTHMA
     Dosage: 80/4.5 TWO PUFFS IN AM AND ONE PUFF IN PM
     Route: 055
     Dates: start: 20070101
  2. NORVASC [Concomitant]
     Indication: HYPERTENSION

REACTIONS (3)
  - DRY EYE [None]
  - SINUS DISORDER [None]
  - VISION BLURRED [None]
